FAERS Safety Report 19021316 (Version 1)
Quarter: 2021Q1

REPORT INFORMATION
  Report Type: Report from Study
  Country: CO (occurrence: CO)
  Receive Date: 20210317
  Receipt Date: 20210317
  Transmission Date: 20210420
  Serious: Yes (Hospitalization)
  Sender: FDA-Public Use
  Company Number: CO-UCBSA-2021011410

PATIENT
  Age: 65 Year
  Sex: Female

DRUGS (1)
  1. CERTOLIZUMAB PEGOL [Suspect]
     Active Substance: CERTOLIZUMAB PEGOL
     Indication: RHEUMATOID ARTHRITIS
     Dosage: 400 MILLIGRAM, EV 4 WEEKS
     Route: 058
     Dates: start: 20200925, end: 20210126

REACTIONS (4)
  - Pyrexia [Recovering/Resolving]
  - Arrhythmia [Recovering/Resolving]
  - Dyspnoea [Recovering/Resolving]
  - Coronavirus test negative [Unknown]

NARRATIVE: CASE EVENT DATE: 20210227
